FAERS Safety Report 9384800 (Version 1)
Quarter: 2013Q3

REPORT INFORMATION
  Report Type: Spontaneous
  Country: US (occurrence: US)
  Receive Date: 20130705
  Receipt Date: 20130705
  Transmission Date: 20140515
  Serious: No
  Sender: FDA-Public Use
  Company Number: US-PFIZER INC-2013197787

PATIENT
  Age: 92 Year
  Sex: Female

DRUGS (1)
  1. PROCARDIA XL [Suspect]
     Indication: BLOOD PRESSURE ABNORMAL
     Dosage: 60 MG, DAILY

REACTIONS (1)
  - Medication residue present [Unknown]
